FAERS Safety Report 22035304 (Version 1)
Quarter: 2023Q1

REPORT INFORMATION
  Report Type: Spontaneous
  Country: US (occurrence: None)
  Receive Date: 20230223
  Receipt Date: 20230223
  Transmission Date: 20230418
  Serious: Yes (Other)
  Sender: FDA-Public Use
  Company Number: None

PATIENT
  Age: 23 Year
  Sex: Male
  Weight: 90 kg

DRUGS (7)
  1. BENADRYL [Suspect]
     Active Substance: DIPHENHYDRAMINE HYDROCHLORIDE
     Indication: Multiple allergies
  2. EQUATE ALLERGY RELIEF NOS [Suspect]
     Active Substance: UNSPECIFIED INGREDIENT
  3. HUMIRA [Concomitant]
     Active Substance: ADALIMUMAB
  4. ESCITALOPRAM [Concomitant]
     Active Substance: ESCITALOPRAM OXALATE
  5. omeporazole [Concomitant]
  6. Viramin B12 [Concomitant]
  7. MELATONIN [Concomitant]
     Active Substance: MELATONIN

REACTIONS (3)
  - Hallucinations, mixed [None]
  - Loss of personal independence in daily activities [None]
  - Somnolence [None]
